FAERS Safety Report 21485867 (Version 1)
Quarter: 2022Q4

REPORT INFORMATION
  Report Type: Spontaneous
  Country: IN (occurrence: IN)
  Receive Date: 20221020
  Receipt Date: 20221020
  Transmission Date: 20230113
  Serious: Yes (Death, Other)
  Sender: FDA-Public Use
  Company Number: IN-SLATE RUN PHARMACEUTICALS-22IN001380

PATIENT

DRUGS (3)
  1. VANCOMYCIN HYDROCHLORIDE [Suspect]
     Active Substance: VANCOMYCIN HYDROCHLORIDE
     Indication: Evidence based treatment
     Dosage: UNK
     Dates: start: 2022
  2. MEROPENEM [Suspect]
     Active Substance: MEROPENEM
     Indication: Evidence based treatment
     Dosage: UNK
     Dates: start: 2022
  3. REMDESIVIR [Suspect]
     Active Substance: REMDESIVIR
     Indication: Product used for unknown indication
     Dosage: UNK
     Dates: start: 2022

REACTIONS (4)
  - Disseminated intravascular coagulation [Fatal]
  - Shock [Fatal]
  - Multiple organ dysfunction syndrome [Fatal]
  - Treatment failure [Unknown]

NARRATIVE: CASE EVENT DATE: 20220101
